FAERS Safety Report 4578673-2 (Version None)
Quarter: 2005Q1

REPORT INFORMATION
  Report Type: 
  Country: None (occurrence: None)
  Receive Date: 20050209
  Receipt Date: 20050209
  Transmission Date: 20050727
  Serious: No
  Sender: FDA-Public Use
  Company Number: None

PATIENT
  Age: 27 Year
  Sex: Female
  Weight: 64.8644 kg

DRUGS (1)
  1. LARIAM [Suspect]
     Indication: MALARIA PROPHYLAXIS
     Dosage: 1   WEEKLY   ORAL
     Route: 048
     Dates: start: 20041218, end: 20050129

REACTIONS (4)
  - ANXIETY [None]
  - DISTURBANCE IN ATTENTION [None]
  - DIZZINESS [None]
  - MEMORY IMPAIRMENT [None]
